FAERS Safety Report 4646074-4 (Version None)
Quarter: 2005Q2

REPORT INFORMATION
  Report Type: 
  Country: None (occurrence: None)
  Receive Date: 20050425
  Receipt Date: 20050413
  Transmission Date: 20051028
  Serious: No
  Sender: FDA-Public Use
  Company Number: 2005058601

PATIENT
  Age: 53 Year
  Sex: Male

DRUGS (3)
  1. AZITHROMYCIN [Suspect]
     Indication: INFECTION
     Dosage: ORAL
     Route: 048
     Dates: start: 20050120, end: 20050124
  2. LAMOTRIGINE [Suspect]
     Indication: BIPOLAR I DISORDER
     Dosage: ORAL
     Route: 048
     Dates: start: 20040719, end: 20050124
  3. OLANZAPINE (OLANZAPINE) [Suspect]
     Indication: BIPOLAR I DISORDER
     Dosage: (10 MG), ORAL
     Route: 048
     Dates: start: 20050118, end: 20050124

REACTIONS (1)
  - RASH GENERALISED [None]
